FAERS Safety Report 10078837 (Version 1)
Quarter: 2014Q2

REPORT INFORMATION
  Report Type: Spontaneous
  Country: US (occurrence: US)
  Receive Date: 20140415
  Receipt Date: 20140415
  Transmission Date: 20141212
  Serious: No
  Sender: FDA-Public Use
  Company Number: US-BAYER-2014-052599

PATIENT
  Age: 33 Year
  Sex: Female
  Weight: 49.89 kg

DRUGS (2)
  1. ALEVE TABLET [Suspect]
     Indication: HEADACHE
     Dosage: 1 DF, UNK EMPTY STOMACH
     Route: 048
  2. ALEVE CAPLET [Suspect]
     Route: 048

REACTIONS (4)
  - Abdominal pain upper [None]
  - Diarrhoea [None]
  - Hyporeflexia [None]
  - Muscle spasms [None]
